FAERS Safety Report 17475097 (Version 2)
Quarter: 2021Q1

REPORT INFORMATION
  Report Type: Report from Study
  Country: GB (occurrence: GB)
  Receive Date: 20200228
  Receipt Date: 20210304
  Transmission Date: 20210419
  Serious: Yes (Hospitalization)
  Sender: FDA-Public Use
  Company Number: GB-JNJFOC-20190825483

PATIENT
  Age: 7 Decade
  Sex: Male

DRUGS (4)
  1. FOLIC ACID. [Concomitant]
     Active Substance: FOLIC ACID
  2. STELARA [Suspect]
     Active Substance: USTEKINUMAB
     Indication: CROHN^S DISEASE
     Route: 058
     Dates: start: 20180827
  3. STELARA [Suspect]
     Active Substance: USTEKINUMAB
  4. VITAMIN D                          /00107901/ [Concomitant]
     Active Substance: ERGOCALCIFEROL

REACTIONS (4)
  - Pneumonia [Recovered/Resolved]
  - Rash [Recovering/Resolving]
  - Bone disorder [Recovering/Resolving]
  - Sepsis [Unknown]
